FAERS Safety Report 22110853 (Version 2)
Quarter: 2023Q1

REPORT INFORMATION
  Report Type: Report from Study
  Country: IT (occurrence: IT)
  Receive Date: 20230317
  Receipt Date: 20230322
  Transmission Date: 20230417
  Serious: Yes (Other)
  Sender: FDA-Public Use
  Company Number: None

PATIENT
  Age: 79 Year
  Sex: Male

DRUGS (2)
  1. IMBRUVICA [Suspect]
     Active Substance: IBRUTINIB
     Indication: Chronic lymphocytic leukaemia
     Dosage: IMBRUVICA 140 MG, 3 CPR ORE 10:00
     Route: 048
     Dates: start: 202110, end: 202206
  2. IMBRUVICA [Suspect]
     Active Substance: IBRUTINIB
     Indication: Chronic lymphocytic leukaemia
     Route: 048
     Dates: start: 201606, end: 201810

REACTIONS (2)
  - Aphthous ulcer [Recovering/Resolving]
  - Mucocutaneous haemorrhage [Recovering/Resolving]

NARRATIVE: CASE EVENT DATE: 20220601
